FAERS Safety Report 25751419 (Version 2)
Quarter: 2025Q4

REPORT INFORMATION
  Report Type: Spontaneous
  Country: CA (occurrence: CA)
  Receive Date: 20250902
  Receipt Date: 20251023
  Transmission Date: 20260118
  Serious: Yes (Other)
  Sender: PFIZER
  Company Number: CA-PFIZER INC-202500171679

PATIENT
  Age: 49 Year
  Sex: Male

DRUGS (4)
  1. RUXIENCE [Suspect]
     Active Substance: RITUXIMAB-PVVR
     Indication: Immunoglobulin G4 related disease
     Dosage: 1000 MG, DAY 1 AND 15
     Route: 042
     Dates: start: 20240924, end: 20241008
  2. RUXIENCE [Suspect]
     Active Substance: RITUXIMAB-PVVR
     Dosage: 1000 MG, ONE DOSE ONLY
     Route: 042
     Dates: start: 20250318, end: 20250318
  3. PREDNISONE [Concomitant]
     Active Substance: PREDNISONE
     Dosage: 15 MG, 1X/DAY
     Route: 048
     Dates: start: 2024
  4. IMURAN [Concomitant]
     Active Substance: AZATHIOPRINE
     Dosage: 50 MG, 1X/DAY
     Route: 048

REACTIONS (1)
  - Clavicle fracture [Unknown]

NARRATIVE: CASE EVENT DATE: 20250101
